FAERS Safety Report 4892134-2 (Version None)
Quarter: 2006Q1

REPORT INFORMATION
  Report Type: 
  Country: None (occurrence: None)
  Receive Date: 20060126
  Receipt Date: 20051219
  Transmission Date: 20060701
  Serious: Yes (Life-Threatening, Hospitalization)
  Sender: FDA-Public Use
  Company Number: US-BRISTOL-MYERS SQUIBB COMPANY-13222245

PATIENT
  Age: 61 Year
  Sex: Male
  Weight: 84 kg

DRUGS (7)
  1. ERBITUX [Suspect]
     Indication: COLON CANCER METASTATIC
     Dosage: FIRST INFUSION. PATIENT WAS TO RECEIVE 780 MG/LOADING DOSE INITIATED 04-JAN-2006/RECEIVED 4 CC/8 MG.
     Route: 042
     Dates: start: 20051213, end: 20051213
  2. BENADRYL [Concomitant]
     Indication: PREMEDICATION
     Dosage: ADMINISTERED OVER 30 MINUTES.
     Route: 042
     Dates: start: 20051213, end: 20051213
  3. TYLENOL (CAPLET) [Concomitant]
     Indication: PREMEDICATION
     Dosage: A FEW REGULAR STRENGTH.
     Dates: start: 20051213, end: 20051213
  4. DARVON [Concomitant]
  5. FLAXSEED [Concomitant]
  6. VITAMIN E [Concomitant]
  7. XANAX [Concomitant]
     Dosage: AT BEDTIME.

REACTIONS (1)
  - HYPERSENSITIVITY [None]
